FAERS Safety Report 13002154 (Version 1)
Quarter: 2016Q4

REPORT INFORMATION
  Report Type: Spontaneous
  Country: DK (occurrence: DK)
  Receive Date: 20161206
  Receipt Date: 20161206
  Transmission Date: 20170207
  Serious: Yes (Disabling)
  Sender: FDA-Public Use
  Company Number: DK-TEVA-715381ACC

PATIENT
  Sex: Female

DRUGS (7)
  1. TAXOL [Suspect]
     Active Substance: PACLITAXEL
     Indication: OVARIAN CANCER STAGE III
     Dosage: DOSIS REGIMEN: 330
     Route: 042
     Dates: start: 20120119, end: 20120507
  2. MOTILIUM [Concomitant]
     Active Substance: DOMPERIDONE
     Dosage: DOSE: 20 MG PN
     Dates: start: 20120119
  3. CARBOPLATIN. [Suspect]
     Active Substance: CARBOPLATIN
     Indication: OVARIAN CANCER STAGE III
     Dosage: THE DOSAGE REGIMEN: 600 THE FIRST 2 TIMES THEN 610TH
     Route: 042
     Dates: start: 20120119, end: 20120507
  4. TRAMADOL. [Concomitant]
     Active Substance: TRAMADOL
     Dosage: DOSE: 50 MG PN
     Dates: start: 20120309
  5. ZOFRAN [Concomitant]
     Active Substance: ONDANSETRON HYDROCHLORIDE
     Dosage: 16 MILLIGRAM DAILY;
     Dates: start: 20120119, end: 20120507
  6. CETIRIZINE [Concomitant]
     Active Substance: CETIRIZINE HYDROCHLORIDE
     Dosage: DOSE: 10 MG PN
     Dates: start: 20120217
  7. PREDNISOLON [Concomitant]
     Active Substance: PREDNISOLONE
     Dosage: DOSE: 25-50 MG
     Dates: start: 20120119, end: 20120507

REACTIONS (3)
  - Sensory disturbance [Not Recovered/Not Resolved]
  - Neuralgia [Not Recovered/Not Resolved]
  - Pain in extremity [Not Recovered/Not Resolved]

NARRATIVE: CASE EVENT DATE: 2012
